FAERS Safety Report 6588876-3 (Version None)
Quarter: 2010Q1

REPORT INFORMATION
  Report Type: 
  Country: None (occurrence: None)
  Receive Date: 20100218
  Receipt Date: 20100210
  Transmission Date: 20100710
  Serious: Yes (Life-Threatening, Hospitalization, Disabling)
  Sender: FDA-Public Use
  Company Number: B0626341A

PATIENT
  Sex: Male
  Weight: 42 kg

DRUGS (5)
  1. RELENZA [Suspect]
     Indication: INFLUENZA
     Dosage: 10MG TWICE PER DAY
     Route: 055
     Dates: start: 20091110, end: 20091111
  2. FLAVERIC [Suspect]
     Indication: DRUG USE FOR UNKNOWN INDICATION
     Dosage: 20MG THREE TIMES PER DAY
     Route: 048
     Dates: start: 20091110, end: 20091111
  3. CALONAL [Suspect]
     Indication: DRUG USE FOR UNKNOWN INDICATION
     Dosage: 400MG PER DAY
     Route: 048
     Dates: start: 20091110, end: 20091111
  4. BAZAROIN [Concomitant]
     Dosage: 30MG PER DAY
     Route: 048
     Dates: start: 20091110
  5. MUCOSAL [Concomitant]
     Dosage: 45MG PER DAY
     Route: 048
     Dates: start: 20091110

REACTIONS (2)
  - HALLUCINATION [None]
  - HALLUCINATION, VISUAL [None]
